FAERS Safety Report 8343409 (Version 2)
Quarter: 2013Q2

REPORT INFORMATION
  Report Type: Spontaneous
  Country: CA (occurrence: CA)
  Receive Date: 20120119
  Receipt Date: 20130410
  Transmission Date: 20140414
  Serious: Yes (Disabling)
  Sender: FDA-Public Use
  Company Number: CA-ELI_LILLY_AND_COMPANY-CA201201002321

PATIENT
  Age: 69 Year
  Sex: Female

DRUGS (8)
  1. EVISTA [Suspect]
     Indication: OSTEOPOROSIS
     Dosage: 60 MG, QD
     Route: 048
  2. SYNTHROID [Concomitant]
     Dosage: 75 UG, EACH MORNING
  3. SIMVASTATIN-TEVA [Concomitant]
     Dosage: 20 MG, EACH EVENING
  4. SERTRALINE [Concomitant]
     Dosage: UNK MG, UNK
  5. ALPRAZOLAM TEVA [Concomitant]
     Dosage: .5 MG, EACH EVENING
  6. SERC                               /00034201/ [Concomitant]
     Dosage: 8 MG, TID
  7. CALCIUM +VIT D [Concomitant]
     Dosage: UNK IU, UNK
  8. D-TABS [Concomitant]

REACTIONS (1)
  - Vitreous floaters [Recovered/Resolved]
